FAERS Safety Report 19692933 (Version 2)
Quarter: 2021Q3

REPORT INFORMATION
  Report Type: Spontaneous
  Country: US (occurrence: US)
  Receive Date: 20210812
  Receipt Date: 20210817
  Transmission Date: 20211014
  Serious: Yes (Hospitalization, Other)
  Sender: FDA-Public Use
  Company Number: US-TEVA-2021-US-1940202

PATIENT
  Age: 98 Year
  Sex: Female

DRUGS (12)
  1. MORPHINE?SULFATE [Suspect]
     Active Substance: MORPHINE SULFATE
     Indication: CANCER PAIN
     Dosage: 45 MILLIGRAM DAILY;
     Route: 048
  2. BENZOCAINE. [Suspect]
     Active Substance: BENZOCAINE
     Indication: CANCER PAIN
     Route: 061
  3. LIPODERM [Concomitant]
     Active Substance: BACLOFEN\CYCLOBENZAPRINE\DICLOFENAC\GABAPENTIN\TETRACAINE
     Indication: CANCER PAIN
     Dosage: 9 ML DAILY;
     Route: 061
     Dates: start: 2018
  4. TRAMADOL. [Suspect]
     Active Substance: TRAMADOL
     Indication: CANCER PAIN
     Route: 065
  5. TRAMADOL. [Suspect]
     Active Substance: TRAMADOL
     Indication: INTENTIONAL OVERDOSE
  6. LIPODERM [Concomitant]
     Active Substance: BACLOFEN\CYCLOBENZAPRINE\DICLOFENAC\GABAPENTIN\TETRACAINE
     Dosage: 18 ML DAILY;
     Route: 061
  7. METHYLPREDNISOLONE. [Suspect]
     Active Substance: METHYLPREDNISOLONE
     Indication: CANCER PAIN
     Route: 065
  8. LIDOCAINE. [Concomitant]
     Active Substance: LIDOCAINE
     Indication: CANCER PAIN
     Dosage: APPLIED TO PERINEUM EVERY ONE TO TWO HOURS.
     Route: 061
  9. HYDROCODONE?ACETAMINOPHEN [Suspect]
     Active Substance: ACETAMINOPHEN\HYDROCODONE
     Indication: CANCER PAIN
     Route: 065
  10. TRAMADOL. [Suspect]
     Active Substance: TRAMADOL
     Indication: SUICIDE ATTEMPT
  11. BUPIVACAINE. [Suspect]
     Active Substance: BUPIVACAINE
     Indication: CANCER PAIN
     Route: 065
  12. OXYCODONE [Suspect]
     Active Substance: OXYCODONE
     Indication: CANCER PAIN
     Dosage: 30 MILLIGRAM DAILY;
     Route: 048

REACTIONS (7)
  - Somnolence [Unknown]
  - Drug ineffective [Unknown]
  - Hallucination [Unknown]
  - Intentional overdose [Recovered/Resolved]
  - Suicide attempt [Recovered/Resolved]
  - Dyspepsia [Unknown]
  - Disorientation [Unknown]
